FAERS Safety Report 8407275-2 (Version None)
Quarter: 2012Q2

REPORT INFORMATION
  Report Type: 
  Country: None (occurrence: None)
  Receive Date: 20120604
  Receipt Date: 20120510
  Transmission Date: 20120825
  Serious: No
  Sender: FDA-Public Use
  Company Number: US-BAYER-2012-049370

PATIENT
  Age: 79 Year
  Sex: Male
  Weight: 113 kg

DRUGS (5)
  1. LIPITOR [Concomitant]
  2. DIURETICS [Concomitant]
  3. ALEVE (CAPLET) [Suspect]
     Indication: BACK PAIN
     Dosage: 2 DF, QD
     Route: 048
  4. PACERONE [Concomitant]
  5. ACCUPRIL [Concomitant]

REACTIONS (2)
  - DIARRHOEA [None]
  - ABDOMINAL PAIN UPPER [None]
